FAERS Safety Report 4287535-X (Version None)
Quarter: 2004Q1

REPORT INFORMATION
  Report Type: 
  Country: None (occurrence: None)
  Receive Date: 20040209
  Receipt Date: 20030718
  Transmission Date: 20041129
  Serious: No
  Sender: FDA-Public Use
  Company Number: US-GLAXOSMITHKLINE-A0417439A

PATIENT
  Age: 50 Year
  Sex: Female

DRUGS (4)
  1. PAXIL CR [Suspect]
     Indication: DEPRESSION
     Dosage: 25MG PER DAY
     Dates: end: 20030714
  2. SOMA [Concomitant]
  3. HYDROCODONE [Concomitant]
  4. PROPRANOLOL [Concomitant]

REACTIONS (1)
  - DEPRESSION [None]
